FAERS Safety Report 9901094 (Version 2)
Quarter: 2014Q1

REPORT INFORMATION
  Report Type: Spontaneous
  Country: US (occurrence: US)
  Receive Date: 20140217
  Receipt Date: 20140314
  Transmission Date: 20141002
  Serious: No
  Sender: FDA-Public Use
  Company Number: US-PFIZER INC-2014041615

PATIENT
  Sex: Male

DRUGS (1)
  1. VIAGRA [Suspect]
     Dosage: 1 DF, SINGLE
     Dates: start: 2011

REACTIONS (2)
  - Cyanopsia [Unknown]
  - Nasal congestion [Unknown]
